FAERS Safety Report 24121930 (Version 1)
Quarter: 2024Q3

REPORT INFORMATION
  Report Type: Spontaneous
  Country: PT (occurrence: PT)
  Receive Date: 20240722
  Receipt Date: 20240722
  Transmission Date: 20241017
  Serious: Yes (Other)
  Sender: MERCK
  Company Number: PT-009507513-2407PRT011859

PATIENT
  Age: 54 Year
  Sex: Male

DRUGS (3)
  1. PEMBROLIZUMAB [Suspect]
     Active Substance: PEMBROLIZUMAB
     Indication: Clear cell renal cell carcinoma
     Dosage: 200 MG, Q3W, 21/21 DAYS
     Route: 042
     Dates: start: 202206
  2. AXITINIB [Suspect]
     Active Substance: AXITINIB
     Indication: Clear cell renal cell carcinoma
     Dosage: 5 MILLIGRAM, Q12H
     Route: 048
     Dates: start: 202206
  3. CABOZANTINIB [Suspect]
     Active Substance: CABOZANTINIB
     Indication: Clear cell renal cell carcinoma
     Dosage: 60 MILLIGRAM, QD
     Route: 048
     Dates: start: 202309

REACTIONS (7)
  - Tumour haemorrhage [Unknown]
  - Malignant neoplasm progression [Unknown]
  - Anaemia [Unknown]
  - Haematuria [Unknown]
  - Asthenia [Unknown]
  - Therapy partial responder [Unknown]
  - Toxicity to various agents [Unknown]

NARRATIVE: CASE EVENT DATE: 20221001
